FAERS Safety Report 19390636 (Version 1)
Quarter: 2021Q2

REPORT INFORMATION
  Report Type: Spontaneous
  Country: BR (occurrence: BR)
  Receive Date: 20210608
  Receipt Date: 20210608
  Transmission Date: 20210717
  Serious: Yes (Other)
  Sender: FDA-Public Use
  Company Number: BR-BAYER-2021-150922

PATIENT
  Age: 67 Year
  Sex: Female

DRUGS (4)
  1. STIVARGA [Suspect]
     Active Substance: REGORAFENIB
     Indication: COLON CANCER METASTATIC
     Dosage: 120 MG, QD
     Route: 048
     Dates: start: 201809
  2. STIVARGA [Suspect]
     Active Substance: REGORAFENIB
     Indication: METASTASES TO LUNG
  3. STIVARGA [Suspect]
     Active Substance: REGORAFENIB
     Indication: METASTASES TO LIVER
     Dosage: 160 MG, QD
     Route: 048
     Dates: end: 201910
  4. STIVARGA [Suspect]
     Active Substance: REGORAFENIB
     Indication: METASTASES TO PELVIS

REACTIONS (6)
  - Metastases to pelvis [None]
  - Off label use [None]
  - Metastases to liver [None]
  - Urogenital fistula [None]
  - Toxicity to various agents [None]
  - Therapeutic response unexpected [None]

NARRATIVE: CASE EVENT DATE: 201910
